FAERS Safety Report 19711844 (Version 1)
Quarter: 2021Q3

REPORT INFORMATION
  Report Type: Report from Study
  Country: US (occurrence: US)
  Receive Date: 20210817
  Receipt Date: 20210817
  Transmission Date: 20211014
  Serious: Yes (Other)
  Sender: FDA-Public Use
  Company Number: US-BEIGENE, LTD-BGN-2021-003310

PATIENT

DRUGS (1)
  1. BRUKINSA [Suspect]
     Active Substance: ZANUBRUTINIB
     Indication: PRODUCT USED FOR UNKNOWN INDICATION
     Dosage: 160 MILLIGRAM, BID
     Route: 048
     Dates: start: 20210724

REACTIONS (5)
  - Ecchymosis [Unknown]
  - Dyspepsia [Recovering/Resolving]
  - Feeling jittery [Unknown]
  - Rash [Unknown]
  - Contusion [Unknown]
